FAERS Safety Report 23310493 (Version 1)
Quarter: 2023Q4

REPORT INFORMATION
  Report Type: Spontaneous
  Country: CN (occurrence: CN)
  Receive Date: 20231218
  Receipt Date: 20231218
  Transmission Date: 20240110
  Serious: Yes (Hospitalization, Other)
  Sender: FDA-Public Use
  Company Number: CN-009507513-2312CHN005195

PATIENT
  Age: 69 Year
  Sex: Female
  Weight: 80 kg

DRUGS (3)
  1. JANUMET [Suspect]
     Active Substance: METFORMIN HYDROCHLORIDE\SITAGLIPTIN PHOSPHATE
     Indication: Blood glucose increased
     Dosage: UNK
     Route: 048
  2. JANUMET [Suspect]
     Active Substance: METFORMIN HYDROCHLORIDE\SITAGLIPTIN PHOSPHATE
     Dosage: 50 MG, BID
     Route: 048
     Dates: start: 20231129, end: 20231201
  3. ACARBOSE [Concomitant]
     Active Substance: ACARBOSE
     Indication: Blood glucose increased
     Dosage: 50 MG, TID
     Route: 048
     Dates: start: 20231129, end: 20231208

REACTIONS (3)
  - Type 2 diabetes mellitus [Unknown]
  - Diarrhoea [Recovering/Resolving]
  - Faeces soft [Unknown]

NARRATIVE: CASE EVENT DATE: 20230101
